FAERS Safety Report 15099094 (Version 1)
Quarter: 2018Q2

REPORT INFORMATION
  Report Type: Spontaneous
  Country: US (occurrence: US)
  Receive Date: 20180611
  Receipt Date: 20180611
  Transmission Date: 20180711
  Serious: Yes (Life-Threatening, Hospitalization)
  Sender: FDA-Public Use
  Company Number: None

PATIENT
  Age: 86 Year
  Sex: Male
  Weight: 74.8 kg

DRUGS (1)
  1. PRADAXA [Suspect]
     Active Substance: DABIGATRAN ETEXILATE MESYLATE
     Indication: ATRIAL FIBRILLATION
     Route: 048
     Dates: start: 20160331, end: 20180611

REACTIONS (5)
  - Flank pain [None]
  - Muscle haemorrhage [None]
  - Groin pain [None]
  - Retroperitoneal haemorrhage [None]
  - Haemoglobin decreased [None]

NARRATIVE: CASE EVENT DATE: 20180611
